FAERS Safety Report 9367060 (Version 1)
Quarter: 2013Q2

REPORT INFORMATION
  Report Type: Spontaneous
  Country: US (occurrence: US)
  Receive Date: 20130625
  Receipt Date: 20130625
  Transmission Date: 20140414
  Serious: No
  Sender: FDA-Public Use
  Company Number: US-BAYER-2013-073949

PATIENT
  Sex: 0

DRUGS (2)
  1. STIVARGA [Suspect]
  2. STIVARGA [Suspect]
     Dosage: 120 MG, UNK
     Route: 048

REACTIONS (1)
  - Hypocalcaemia [None]
